FAERS Safety Report 21230190 (Version 1)
Quarter: 2022Q3

REPORT INFORMATION
  Report Type: Spontaneous
  Country: US (occurrence: US)
  Receive Date: 20220818
  Receipt Date: 20220818
  Transmission Date: 20221027
  Serious: No
  Sender: FDA-Public Use
  Company Number: US-LOREAL USA PRODUCTS, INC.-2021LOR00026

PATIENT
  Sex: Female

DRUGS (5)
  1. LA ROCHE POSAY LAB. DERMATOLOGIQUE ANTHELIOS SX DAILY MOISTURIZING SUN [Suspect]
     Active Substance: AVOBENZONE\ECAMSULE\OCTOCRYLENE
     Indication: Prophylaxis
     Dosage: LITTLE DOT OF THE CREAM AND THEN APPLIED IT TO MY FACE
     Dates: start: 202108, end: 20210816
  2. LA ROCHE POSAY LAB. DERMATOLOGIQUE ANTHELIOS SX DAILY MOISTURIZING SUN [Suspect]
     Active Substance: AVOBENZONE\ECAMSULE\OCTOCRYLENE
     Indication: Sunburn
     Dosage: LITTLE DOT OF THE CREAM AND THEN APPLIED IT TO MY FACE
     Dates: start: 202108
  3. AVOBENZONE\ECAMSULE\OCTOCRYLENE [Suspect]
     Active Substance: AVOBENZONE\ECAMSULE\OCTOCRYLENE
     Indication: Prophylaxis
     Dosage: UNK
     Dates: start: 202108
  4. AVOBENZONE\ECAMSULE\OCTOCRYLENE [Suspect]
     Active Substance: AVOBENZONE\ECAMSULE\OCTOCRYLENE
     Indication: Sunburn
  5. SUPERGOOP SUNSCREEN [Concomitant]

REACTIONS (2)
  - Burning sensation [Recovering/Resolving]
  - Rash [Recovering/Resolving]

NARRATIVE: CASE EVENT DATE: 20210801
